FAERS Safety Report 8466614-7 (Version None)
Quarter: 2012Q2

REPORT INFORMATION
  Report Type: 
  Country: None (occurrence: None)
  Receive Date: 20120619
  Receipt Date: 20110711
  Transmission Date: 20120825
  Serious: Yes (Death)
  Sender: FDA-Public Use
  Company Number: ADR-2011-10136

PATIENT
  Age: 60 Year
  Sex: Male

DRUGS (1)
  1. LIORESAL [Suspect]
     Indication: MUSCLE SPASTICITY
     Dosage: 145.7 MCG, DAILY, INTRA
     Route: 037

REACTIONS (4)
  - DEVICE ALARM ISSUE [None]
  - PROCEDURAL PAIN [None]
  - MYOCARDIAL INFARCTION [None]
  - MUSCLE SPASTICITY [None]
